FAERS Safety Report 6598732-2 (Version None)
Quarter: 2010Q1

REPORT INFORMATION
  Report Type: 
  Country: None (occurrence: None)
  Receive Date: 20100224
  Receipt Date: 20100119
  Transmission Date: 20100710
  Serious: Yes (Other)
  Sender: FDA-Public Use
  Company Number: CA-PFIZER INC-2010018557

PATIENT

DRUGS (1)
  1. CHAMPIX [Suspect]

REACTIONS (6)
  - AGGRESSION [None]
  - AGITATION [None]
  - OBSESSIVE THOUGHTS [None]
  - PARANOIA [None]
  - SUICIDAL IDEATION [None]
  - VERBAL ABUSE [None]
